FAERS Safety Report 15515204 (Version 1)
Quarter: 2018Q4

REPORT INFORMATION
  Report Type: Spontaneous
  Country: US (occurrence: US)
  Receive Date: 20181017
  Receipt Date: 20181017
  Transmission Date: 20190205
  Serious: No
  Sender: FDA-Public Use
  Company Number: US-009507513-1810USA001318

PATIENT
  Age: 21 Year
  Sex: Female
  Weight: 77.55 kg

DRUGS (3)
  1. NEXPLANON [Suspect]
     Active Substance: ETONOGESTREL
     Dosage: UNK
  2. NEXPLANON [Suspect]
     Active Substance: ETONOGESTREL
     Dosage: 68 MG, UNK
     Route: 059
     Dates: start: 20181001
  3. NEXPLANON [Suspect]
     Active Substance: ETONOGESTREL
     Dosage: 68MG,1DF
     Route: 059
     Dates: start: 20181001

REACTIONS (3)
  - Device deployment issue [Recovered/Resolved]
  - Product quality issue [Unknown]
  - No adverse event [Unknown]

NARRATIVE: CASE EVENT DATE: 20181001
